FAERS Safety Report 4491373-2 (Version None)
Quarter: 2004Q4

REPORT INFORMATION
  Report Type: 
  Country: None (occurrence: None)
  Receive Date: 20041029
  Receipt Date: 20041014
  Transmission Date: 20050328
  Serious: Yes (Hospitalization)
  Sender: FDA-Public Use
  Company Number: 9052

PATIENT
  Age: 6 Year
  Sex: Male

DRUGS (1)
  1. METHOTREXATE [Suspect]
     Indication: JUVENILE ARTHRITIS
     Dosage: 8.5 MG WEEKLY SC
     Route: 058
     Dates: start: 20021107

REACTIONS (4)
  - CONDITION AGGRAVATED [None]
  - JOINT EFFUSION [None]
  - JUVENILE ARTHRITIS [None]
  - PAIN IN EXTREMITY [None]
